FAERS Safety Report 9920883 (Version 2)
Quarter: 2014Q2

REPORT INFORMATION
  Report Type: Spontaneous
  Country: FR (occurrence: FR)
  Receive Date: 20140225
  Receipt Date: 20140527
  Transmission Date: 20141212
  Serious: Yes (Hospitalization, Other)
  Sender: FDA-Public Use
  Company Number: FR-ROCHE-1354790

PATIENT
  Sex: Male

DRUGS (2)
  1. XOLAIR [Suspect]
     Indication: ASTHMA
     Route: 058
     Dates: start: 2013
  2. XOLAIR [Suspect]
     Route: 058
     Dates: start: 201402, end: 201402

REACTIONS (2)
  - Acute coronary syndrome [Recovered/Resolved]
  - Asthma [Unknown]
